FAERS Safety Report 14425471 (Version 8)
Quarter: 2018Q4

REPORT INFORMATION
  Report Type: Spontaneous
  Country: US (occurrence: US)
  Receive Date: 20180123
  Receipt Date: 20181227
  Transmission Date: 20190204
  Serious: Yes (Other)
  Sender: FDA-Public Use
  Company Number: US-SA-2018SA014849

PATIENT
  Sex: Male

DRUGS (1)
  1. GOLD BOND MEDICATED FOOT [Suspect]
     Active Substance: MENTHOL
     Dosage: UNK UNK,UNK
     Route: 065

REACTIONS (8)
  - Neoplasm [Unknown]
  - Cerebrovascular accident [Unknown]
  - Arteriosclerosis [Unknown]
  - Enzyme level decreased [Unknown]
  - Sarcoidosis [Unknown]
  - Renal disorder [Unknown]
  - Lung disorder [Unknown]
  - Liver disorder [Unknown]

NARRATIVE: CASE EVENT DATE: 2003
